FAERS Safety Report 22346349 (Version 1)
Quarter: 2023Q2

REPORT INFORMATION
  Report Type: Report from Study
  Country: CA (occurrence: CA)
  Receive Date: 20230519
  Receipt Date: 20230519
  Transmission Date: 20230722
  Serious: Yes (Death)
  Sender: FDA-Public Use
  Company Number: CA-BAYER-2023A066175

PATIENT
  Age: 80 Year
  Sex: Female

DRUGS (13)
  1. ADEMPAS [Suspect]
     Active Substance: RIOCIGUAT
     Indication: Pulmonary arterial hypertension
     Dosage: 2.5 MG, TID
     Dates: start: 20160720
  2. PANTOPRAZOLE [Concomitant]
     Active Substance: PANTOPRAZOLE
  3. POTASSIUM [Concomitant]
     Active Substance: POTASSIUM
  4. PREDNISONE [Concomitant]
     Active Substance: PREDNISONE
  5. SENOKOT [Concomitant]
     Active Substance: SENNOSIDES
  6. SPIRONOLACTONE [Concomitant]
     Active Substance: SPIRONOLACTONE
  7. VITAMIN D NOS [Concomitant]
     Active Substance: VITAMIN D NOS
  8. FENTANYL [Concomitant]
     Active Substance: FENTANYL
  9. DICLOFENAC [Concomitant]
     Active Substance: DICLOFENAC
  10. LASIX [Concomitant]
     Active Substance: FUROSEMIDE
  11. APIXABAN [Concomitant]
     Active Substance: APIXABAN
  12. BOSENTAN [Concomitant]
     Active Substance: BOSENTAN
  13. DOMPERIDONE [Concomitant]
     Active Substance: DOMPERIDONE

REACTIONS (1)
  - Death [Fatal]
